FAERS Safety Report 8141108-7 (Version None)
Quarter: 2012Q1

REPORT INFORMATION
  Report Type: 
  Country: None (occurrence: None)
  Receive Date: 20120216
  Receipt Date: 20120202
  Transmission Date: 20120608
  Serious: Yes (Life-Threatening, Hospitalization)
  Sender: FDA-Public Use
  Company Number: JP-NAPPMUNDI-MAG-2012-0002025

PATIENT
  Age: 85 Year
  Sex: Female

DRUGS (10)
  1. BUPRENORPHINE [Suspect]
     Dosage: 5 MCG, Q1H
     Route: 062
     Dates: start: 20111210, end: 20111226
  2. BUPRENORPHINE [Suspect]
     Indication: ANALGESIC THERAPY
     Dosage: 5 MCG, Q1H
     Route: 062
     Dates: start: 20111121, end: 20111101
  3. VASOLAN                            /00014302/ [Concomitant]
     Indication: TACHYCARDIA
     Dosage: UNK
     Route: 048
     Dates: start: 20111206, end: 20111226
  4. BUPRENORPHINE [Suspect]
     Dosage: 5 MCG, Q1H
     Route: 062
     Dates: start: 20111201, end: 20111203
  5. ASPIRIN [Concomitant]
     Dosage: 100 MG, DAILY
     Route: 048
  6. PURSENNID                          /00142207/ [Concomitant]
     Indication: CONSTIPATION
     Dosage: 24 MG, DAILY
     Route: 048
  7. MAGMITT [Concomitant]
     Indication: CONSTIPATION
     Dosage: 1500 MG, DAILY
     Route: 048
  8. CARVEDILOL [Concomitant]
     Indication: HYPERTENSION
     Dosage: 25 MG, DAILY
     Route: 048
  9. NORVASC [Concomitant]
  10. ACETAMINOPHEN [Concomitant]
     Indication: PAIN
     Dosage: 800 MG, DAILY
     Route: 048
     Dates: start: 20111115

REACTIONS (3)
  - BRADYCARDIA [None]
  - ACUTE ABDOMEN [None]
  - RESTLESSNESS [None]
